FAERS Safety Report 8445808-0 (Version None)
Quarter: 2012Q2

REPORT INFORMATION
  Report Type: 
  Country: None (occurrence: None)
  Receive Date: 20120618
  Receipt Date: 20120607
  Transmission Date: 20120825
  Serious: Yes (Other)
  Sender: FDA-Public Use
  Company Number: US-ASTRAZENECA-2012SE38727

PATIENT
  Age: 59 Year
  Sex: Male

DRUGS (15)
  1. ALBUTEROL SULATE [Concomitant]
     Dosage: 2.5 MG/3 ML, 1 VIAL VIA NEBULIZER EVERY 4-6 HOURS AS NEEDED FOR RESCUE
     Dates: start: 20120216
  2. PROCHLORPERAZINE MAL [Concomitant]
     Indication: NAUSEA
     Dosage: 1 EVERY 6 AS NEEDED
     Route: 048
  3. FLUTICASONE PROPIONA [Concomitant]
     Dosage: 2 SPRAYS EACH NOSTRIL DAILY
     Route: 045
     Dates: start: 20120216
  4. LANSOPRAZOLE [Concomitant]
     Route: 048
     Dates: start: 20111020
  5. LORTAB [Concomitant]
     Indication: PAIN
     Dosage: 5-500 MG, 1-2 EVERY 6 HOURS AS NEEDED
     Route: 048
     Dates: start: 20111020
  6. ADVAIR DISKUS 100/50 [Concomitant]
     Dosage: 500-50 MCG ONE DOSE TWICE DAILY
     Route: 055
     Dates: start: 20110519
  7. FEXOFENADINE HCL [Concomitant]
     Route: 048
     Dates: start: 20110502
  8. VENTOLIN HFA [Concomitant]
     Dosage: 108 (90 BA) ONE TO TWO PUFFS 4 TIMES DAILY AS NEEDED
     Route: 055
     Dates: start: 20100503
  9. DEXAMETHASONE [Concomitant]
     Dosage: 1 TWO TIMES A DAY BEFORE. THE DAY OF, AND THE DAY AFTER CHEMO
     Route: 048
  10. LORAZEPAM [Concomitant]
     Indication: ANXIETY
     Dosage: 1 TABLET THREE TIMES A DAY AS NEEDED
     Route: 048
     Dates: start: 20110822
  11. CIPROFLOXACIN HCL [Concomitant]
     Route: 048
  12. AMLODIPINE BESYLATE [Concomitant]
     Dosage: 108 (90 BA) ONE TO TWO PUFFS 4 TIMES DAILY AS NEEDED
     Route: 048
     Dates: start: 20090519
  13. SPIRIVA [Concomitant]
     Route: 055
  14. ACCOLATE [Suspect]
     Route: 048
     Dates: start: 20070813
  15. CITALOPRAM HYDROBROM [Concomitant]
     Route: 048
     Dates: start: 20120124

REACTIONS (1)
  - LUNG NEOPLASM MALIGNANT [None]
